FAERS Safety Report 20606482 (Version 1)
Quarter: 2022Q1

REPORT INFORMATION
  Report Type: Spontaneous
  Country: AR (occurrence: AR)
  Receive Date: 20220317
  Receipt Date: 20220317
  Transmission Date: 20220423
  Serious: Yes (Other)
  Sender: FDA-Public Use
  Company Number: AR-NOVARTISPH-NVSC2022AR060221

PATIENT
  Sex: Female

DRUGS (7)
  1. ZOLEDRONIC ACID [Suspect]
     Active Substance: ZOLEDRONIC ACID
     Indication: Product used for unknown indication
     Dosage: UNK
     Route: 065
  2. ARIMIDEX [Concomitant]
     Active Substance: ANASTROZOLE
     Indication: Breast cancer metastatic
     Dosage: 1 G
     Route: 065
     Dates: start: 20141010, end: 202110
  3. ARIMIDEX [Concomitant]
     Active Substance: ANASTROZOLE
     Indication: Metastases to lymph nodes
  4. ARIMIDEX [Concomitant]
     Active Substance: ANASTROZOLE
     Indication: Metastases to chest wall
  5. ARIMIDEX [Concomitant]
     Active Substance: ANASTROZOLE
     Indication: Metastases to thorax
  6. ARIMIDEX [Concomitant]
     Active Substance: ANASTROZOLE
     Indication: Metastases to lung
  7. ARIMIDEX [Concomitant]
     Active Substance: ANASTROZOLE
     Indication: Metastases to pleura

REACTIONS (2)
  - Disease recurrence [Unknown]
  - Neoplasm malignant [Unknown]
